FAERS Safety Report 23595188 (Version 1)
Quarter: 2024Q1

REPORT INFORMATION
  Report Type: Spontaneous
  Country: DE (occurrence: DE)
  Receive Date: 20240305
  Receipt Date: 20240305
  Transmission Date: 20240410
  Serious: Yes (Hospitalization)
  Sender: FDA-Public Use
  Company Number: DE-ROCHE-3467695

PATIENT
  Age: 43 Year
  Sex: Male
  Weight: 74 kg

DRUGS (20)
  1. CHOLECALCIFEROL [Suspect]
     Active Substance: CHOLECALCIFEROL
     Dosage: 0.01 DF (0.01 IU)
     Route: 065
  2. CHOLECALCIFEROL [Suspect]
     Active Substance: CHOLECALCIFEROL
     Dosage: 1000 DF (1000 IU)
     Route: 065
  3. CHOLECALCIFEROL [Suspect]
     Active Substance: CHOLECALCIFEROL
     Dosage: 500 DF (500 IU)
     Route: 065
  4. CHOLECALCIFEROL [Suspect]
     Active Substance: CHOLECALCIFEROL
     Dosage: 5400 DF (5400 IU)
     Route: 065
  5. CHOLECALCIFEROL [Suspect]
     Active Substance: CHOLECALCIFEROL
     Indication: Prophylaxis
     Dosage: UNK, DOSE: 20000DOSE FREQUENCY: QS (EVERY WEEK)
     Route: 065
     Dates: start: 202306
  6. OCRELIZUMAB [Suspect]
     Active Substance: OCRELIZUMAB
     Indication: Relapsing multiple sclerosis
     Dosage: 300 MG
     Route: 042
     Dates: start: 20230623
  7. OCRELIZUMAB [Suspect]
     Active Substance: OCRELIZUMAB
     Dosage: 300.000MG BIW
     Route: 042
     Dates: start: 20230707
  8. OCRELIZUMAB [Suspect]
     Active Substance: OCRELIZUMAB
     Dosage: 4 MG ONCE
     Route: 065
     Dates: start: 20230623, end: 20230623
  9. OCRELIZUMAB [Suspect]
     Active Substance: OCRELIZUMAB
     Dosage: 4 MG ONCE/SINGLE
     Route: 065
     Dates: start: 20230707, end: 20230707
  10. PREDNISOLONE [Suspect]
     Active Substance: PREDNISOLONE
     Indication: Multiple sclerosis
     Dosage: UNK, HIGH DOSE (NOS)
     Route: 042
     Dates: start: 20231123, end: 20231126
  11. DIMETHINDENE [Concomitant]
     Active Substance: DIMETHINDENE
     Indication: Prophylaxis
     Dosage: DOSE FREQUENCY: ONCE
     Route: 065
     Dates: start: 20230707, end: 20230707
  12. DIMETHINDENE [Concomitant]
     Active Substance: DIMETHINDENE
     Dosage: DOSE FREQUENCY: ONCE
     Route: 065
     Dates: start: 20230623, end: 20230623
  13. FLUOXETINE HYDROCHLORIDE [Concomitant]
     Active Substance: FLUOXETINE HYDROCHLORIDE
     Indication: Post-traumatic stress disorder
     Dosage: 2 MG, QD
     Route: 065
     Dates: start: 2021
  14. DEXAMETHASONE [Concomitant]
     Active Substance: DEXAMETHASONE
     Indication: Prophylaxis
     Dosage: 12 MG, DOSE FREQUENCY: ONCE
     Route: 065
     Dates: start: 20230623, end: 20230623
  15. PANTOPRAZOLE SODIUM [Concomitant]
     Active Substance: PANTOPRAZOLE SODIUM
     Indication: Product used for unknown indication
     Dosage: UNK, DOSE: 40DOSE FREQUENCY: PRN (AS NEEDED)
     Route: 065
     Dates: start: 202302
  16. ACETAMINOPHEN [Concomitant]
     Active Substance: ACETAMINOPHEN
     Indication: Prophylaxis
     Dosage: 1 G, DOSE FREQUENCY: ONCE
     Route: 065
     Dates: start: 20230623, end: 20230623
  17. ACETAMINOPHEN [Concomitant]
     Active Substance: ACETAMINOPHEN
     Dosage: 1000 MG, DOSE FREQUENCY: ONCE
     Route: 065
     Dates: start: 20230707, end: 20230707
  18. QUETIAPINE [Concomitant]
     Active Substance: QUETIAPINE
     Indication: Post-traumatic stress disorder
     Dosage: 25.000MG QD
     Route: 065
     Dates: start: 2021
  19. THOMAPYRIN CLASSIC [Concomitant]
     Indication: Headache
     Dosage: UNK, DOSE: 1DOSE FREQUENCY: PRN (AS NEEDED)
     Route: 065
     Dates: start: 2020
  20. METHYLPREDNISOLONE [Concomitant]
     Active Substance: METHYLPREDNISOLONE
     Indication: Prophylaxis
     Dosage: 96 MG, DOSE FREQUENCY: ONCE
     Route: 065
     Dates: start: 20230707, end: 20230707

REACTIONS (4)
  - Multiple sclerosis relapse [Recovered/Resolved]
  - COVID-19 [Recovered/Resolved]
  - Glomerular filtration rate increased [Unknown]
  - Uhthoff^s phenomenon [Not Recovered/Not Resolved]

NARRATIVE: CASE EVENT DATE: 20231101
